FAERS Safety Report 7299540-X (Version None)
Quarter: 2010Q4

REPORT INFORMATION
  Report Type: 
  Country: None (occurrence: None)
  Receive Date: 20101223
  Receipt Date: 20101021
  Transmission Date: 20110411
  Serious: Yes (Other)
  Sender: FDA-Public Use
  Company Number: 316943

PATIENT
  Age: 44 Year
  Sex: Female
  Weight: 68 kg

DRUGS (2)
  1. NOVOLOG [Suspect]
     Indication: TYPE 1 DIABETES MELLITUS
     Dosage: TID SLIDING SCALE, SUBCUTANEOUS
     Route: 058
     Dates: start: 20000101
  2. LEVEMIR [Suspect]
     Indication: TYPE 1 DIABETES MELLITUS
     Dosage: 14 U, QD, SUBCUTANEOUS
     Route: 058

REACTIONS (1)
  - BLOOD GLUCOSE DECREASED [None]
